FAERS Safety Report 6338367-X (Version None)
Quarter: 2009Q3

REPORT INFORMATION
  Report Type: 
  Country: None (occurrence: None)
  Receive Date: 20090901
  Receipt Date: 20090825
  Transmission Date: 20100115
  Serious: Yes (Hospitalization)
  Sender: FDA-Public Use
  Company Number: 2009009938

PATIENT
  Age: 74 Year
  Sex: Male
  Weight: 83.5 kg

DRUGS (5)
  1. TREANDA [Suspect]
     Indication: MULTIPLE MYELOMA
     Dosage: (100 MG, DAYS 1 AND 2 OF 28 DAY CYCLE), INTRAVENOUS
     Route: 042
     Dates: start: 20090715, end: 20090716
  2. LENALIDOMIDE (LENALIDOMIDE) [Suspect]
     Indication: MULTIPLE MYELOMA
     Dosage: (10 MG, DAYS 1-21 OF 28 DAY CYCLE), ORAL
     Route: 048
     Dates: start: 20090715, end: 20090805
  3. ATENOLOL [Concomitant]
  4. LIPITOR [Concomitant]
  5. GLUCOPHAGE [Concomitant]

REACTIONS (2)
  - SYNCOPE [None]
  - THROMBOCYTOPENIA [None]
